FAERS Safety Report 6014631-9 (Version None)
Quarter: 2008Q4

REPORT INFORMATION
  Report Type: 
  Country: None (occurrence: None)
  Receive Date: 20081216
  Receipt Date: 20080805
  Transmission Date: 20090506
  Serious: Yes (Other)
  Sender: FDA-Public Use
  Company Number: US-WYE-H05370308

PATIENT
  Age: 75 Year
  Sex: Female
  Weight: 53 kg

DRUGS (8)
  1. EFFEXOR XR [Suspect]
     Dates: start: 20080204, end: 20080307
  2. CELEXA [Suspect]
  3. SUTENT [Suspect]
     Indication: METASTATIC RENAL CELL CARCINOMA
     Dosage: 50 MG 1X PER 1 DAY, ORAL
     Route: 048
     Dates: start: 20080104, end: 20080101
  4. PREMARIN [Concomitant]
  5. FOSAMAX [Concomitant]
  6. FOLIC ACID [Concomitant]
  7. ALLOPURINOL [Concomitant]
  8. VITAMINS WITH MINERALS (VITAMINS WITH MINERALS) [Concomitant]

REACTIONS (3)
  - AMNESIA [None]
  - DIZZINESS [None]
  - GAIT DISTURBANCE [None]
